FAERS Safety Report 9571057 (Version 1)
Quarter: 2013Q4

REPORT INFORMATION
  Report Type: Spontaneous
  Country: SE (occurrence: SE)
  Receive Date: 20131001
  Receipt Date: 20131001
  Transmission Date: 20140711
  Serious: Yes (Other)
  Sender: FDA-Public Use
  Company Number: SE-JNJFOC-20130917614

PATIENT
  Age: 47 Year
  Sex: Male

DRUGS (3)
  1. XARELTO [Suspect]
     Indication: PRODUCT USED FOR UNKNOWN INDICATION
     Route: 048
  2. KAAVEPENIN [Concomitant]
     Route: 065
  3. CANDESARTAN [Concomitant]
     Route: 065

REACTIONS (1)
  - Urticaria [Unknown]
